FAERS Safety Report 9447234 (Version 1)
Quarter: 2013Q3

REPORT INFORMATION
  Report Type: Spontaneous
  Country: FR (occurrence: FR)
  Receive Date: 20130808
  Receipt Date: 20130808
  Transmission Date: 20140515
  Serious: Yes (Hospitalization)
  Sender: FDA-Public Use
  Company Number: FR-ROCHE-1258173

PATIENT
  Age: 78 Year
  Sex: Female

DRUGS (10)
  1. MABTHERA [Suspect]
     Indication: LYMPHOCYTIC LYMPHOMA
     Dosage: CYCLE EVERY 28 DAYS
     Route: 041
     Dates: start: 20121003, end: 20130315
  2. LEVACT (FRANCE) [Suspect]
     Indication: LYMPHOCYTIC LYMPHOMA
     Dosage: CYCLE EVERY 28 DAYS
     Route: 041
     Dates: start: 20121003, end: 20130315
  3. ISOPTINE [Concomitant]
  4. DIGOXINE [Concomitant]
  5. DIFFU K [Concomitant]
  6. FEMARA [Concomitant]
  7. INEXIUM [Concomitant]
  8. LEVOTHYROX [Concomitant]
  9. PARACETAMOL [Concomitant]
  10. PLAVIX [Concomitant]

REACTIONS (1)
  - Colitis [Recovering/Resolving]
